FAERS Safety Report 10183531 (Version 1)
Quarter: 2014Q2

REPORT INFORMATION
  Report Type: Spontaneous
  Country: GB (occurrence: GB)
  Receive Date: 20140520
  Receipt Date: 20140520
  Transmission Date: 20141212
  Serious: Yes (Hospitalization)
  Sender: FDA-Public Use
  Company Number: GB-TEVA-481333ISR

PATIENT
  Age: 20 Year
  Sex: Male
  Weight: 76 kg

DRUGS (10)
  1. METHOTREXATE [Suspect]
     Indication: OSTEOSARCOMA
     Route: 042
     Dates: start: 20131202
  2. MIFAMURTIDE SODIUM [Interacting]
     Indication: OSTEOSARCOMA
     Route: 042
     Dates: start: 20140327
  3. APREPITANT [Concomitant]
  4. CALCIUM LEVOFOLINATE [Concomitant]
  5. CISPLATIN [Concomitant]
  6. DEXAMETHASONE [Concomitant]
  7. DOXORUBICIN [Concomitant]
  8. METOCLOPRAMIDE [Concomitant]
  9. ONDANSETRON [Concomitant]
  10. SODIUM BICARBONATE [Concomitant]

REACTIONS (3)
  - Chemotherapeutic drug level increased [Recovered/Resolved]
  - Blood creatine increased [Not Recovered/Not Resolved]
  - Potentiating drug interaction [Unknown]
